FAERS Safety Report 21718938 (Version 1)
Quarter: 2022Q4

REPORT INFORMATION
  Report Type: Spontaneous
  Country: US (occurrence: US)
  Receive Date: 20221213
  Receipt Date: 20221213
  Transmission Date: 20230113
  Serious: Yes (Hospitalization, Other)
  Sender: FDA-Public Use
  Company Number: US-BRISTOL-MYERS SQUIBB COMPANY-2022-149578

PATIENT
  Age: 70 Year
  Sex: Male

DRUGS (2)
  1. POMALYST [Suspect]
     Active Substance: POMALIDOMIDE
     Indication: Kaposi^s sarcoma
     Dosage: TAKE 1 CAPSULE (ALONG WITH ONE 4MG CAPSULE) BY MOUTH DAILY FOR 21 DAYS ON, THEN 7 DAYS OFF.
     Route: 048
     Dates: start: 20220921
  2. POMALYST [Suspect]
     Active Substance: POMALIDOMIDE
     Dosage: TAKE 1 CAPSULE (ALONG WITH ONE 4MG CAPSULE) BY MOUTH DAILY FOR 21 DAYS ON, THEN 7 DAYS OFF.
     Route: 048
     Dates: start: 20220921

REACTIONS (2)
  - Pulmonary amyloidosis [Recovered/Resolved]
  - Prescribed overdose [Unknown]
